FAERS Safety Report 7617811-1 (Version None)
Quarter: 2011Q3

REPORT INFORMATION
  Report Type: 
  Country: None (occurrence: None)
  Receive Date: 20110718
  Receipt Date: 20110707
  Transmission Date: 20111222
  Serious: Yes (Life-Threatening, Hospitalization)
  Sender: FDA-Public Use
  Company Number: GB-BAXTER-2011BH022545

PATIENT
  Age: 28 Year
  Sex: Female

DRUGS (12)
  1. SODIUM LACTATE IN PLASTIC CONTAINER [Concomitant]
     Indication: PRODUCT USED FOR UNKNOWN INDICATION
     Route: 065
  2. BUPIVACAINE HCL [Suspect]
     Indication: ANALGESIC THERAPY
     Route: 008
     Dates: start: 20110530
  3. SODIUM CHLORIDE 0.9% IN PLASTIC CONTAINER [Suspect]
     Indication: PROPHYLAXIS
     Route: 065
  4. FENTANYL CITRATE [Suspect]
     Route: 008
     Dates: start: 20110530, end: 20110530
  5. FENTANYL CITRATE [Suspect]
     Route: 008
     Dates: start: 20110530, end: 20110530
  6. CALCIUM CHLORIDE [Concomitant]
     Indication: PRODUCT USED FOR UNKNOWN INDICATION
     Route: 065
  7. POTASSIUM CHLORIDE IN PLASTIC CONTAINER [Suspect]
     Indication: PRODUCT USED FOR UNKNOWN INDICATION
     Route: 041
     Dates: start: 20110530, end: 20110530
  8. FENTANYL CITRATE [Suspect]
     Route: 008
     Dates: start: 20110530, end: 20110530
  9. FENTANYL CITRATE [Suspect]
     Indication: ANALGESIC THERAPY
     Route: 008
     Dates: start: 20110530, end: 20110530
  10. HARTMANN'S SOLUTION [Suspect]
     Indication: FLUID REPLACEMENT
     Route: 042
     Dates: start: 20110530, end: 20110530
  11. FENTANYL CITRATE [Suspect]
     Route: 008
     Dates: start: 20110530, end: 20110530
  12. RANITIDINE [Suspect]
     Indication: PROPHYLAXIS
     Route: 048
     Dates: start: 20110530, end: 20110530

REACTIONS (4)
  - UNRESPONSIVE TO STIMULI [None]
  - MATERNAL EXPOSURE DURING PREGNANCY [None]
  - CARDIAC ARREST [None]
  - APNOEA [None]
